FAERS Safety Report 23133252 (Version 1)
Quarter: 2023Q4

REPORT INFORMATION
  Report Type: Spontaneous
  Country: US (occurrence: US)
  Receive Date: 20231101
  Receipt Date: 20231101
  Transmission Date: 20240109
  Serious: Yes (Life-Threatening, Hospitalization)
  Sender: FDA-Public Use
  Company Number: US-drreddys-LIT/USA/23/0180936

PATIENT
  Age: 22 Year

DRUGS (7)
  1. ONDANSETRON [Suspect]
     Active Substance: ONDANSETRON
     Indication: Nausea
     Dosage: 20 TABLETS 9 DAYS
     Dates: start: 20220112
  2. GABAPENTIN [Suspect]
     Active Substance: GABAPENTIN
     Indication: Migraine
     Dates: start: 20220112
  3. GABAPENTIN [Suspect]
     Active Substance: GABAPENTIN
     Dates: start: 20220210
  4. DULOXETINE [Suspect]
     Active Substance: DULOXETINE
     Indication: Product used for unknown indication
     Dates: start: 20211229
  5. BUPROPION [Suspect]
     Active Substance: BUPROPION
     Indication: Anxiety disorder
     Dates: start: 20211229
  6. BUPROPION [Suspect]
     Active Substance: BUPROPION
     Dates: start: 20220301
  7. AMANTADINE [Suspect]
     Active Substance: AMANTADINE
     Indication: Post-traumatic headache
     Dates: start: 20220405

REACTIONS (1)
  - Serotonin syndrome [Unknown]
